FAERS Safety Report 4837713-3 (Version None)
Quarter: 2005Q4

REPORT INFORMATION
  Report Type: 
  Country: None (occurrence: None)
  Receive Date: 20051024
  Receipt Date: 20050711
  Transmission Date: 20060501
  Serious: No
  Sender: FDA-Public Use
  Company Number: 216033

PATIENT
  Age: 68 Year
  Sex: Male

DRUGS (20)
  1. XOLAIR [Suspect]
     Indication: ASTHMA
     Dosage: 300 MG, SUBCUTANEOUS
     Route: 058
     Dates: start: 20030819
  2. FLOVENT [Concomitant]
  3. SEREVENT DISKUS (SALMETEROL XINAFOATE) [Concomitant]
  4. SINGULAIR [Concomitant]
  5. ZYRTEC-D 12 HOUR [Concomitant]
  6. ASTELIN [Concomitant]
  7. COMBIVENT INHALER (ALBUTEROL SULFATE, ALBUTEROL, IPRATROPIUM BROMIDE) [Concomitant]
  8. ALPRAZOLAM [Concomitant]
  9. CELEBREX [Concomitant]
  10. DIOVAN [Concomitant]
  11. DRISDOL [Concomitant]
  12. FUROSEMIDE [Concomitant]
  13. GLUCOPHAGE [Concomitant]
  14. LEVOXYL [Concomitant]
  15. POTASSIUM CHLORIDE SR (POTASSIUM CHLORIDE) [Concomitant]
  16. PRANDIN [Concomitant]
  17. PROZAC [Concomitant]
  18. TRIAZOLAM [Concomitant]
  19. VICODIN [Concomitant]
  20. ZOCOR [Concomitant]

REACTIONS (2)
  - RHINORRHOEA [None]
  - SNEEZING [None]
